FAERS Safety Report 13620031 (Version 1)
Quarter: 2017Q2

REPORT INFORMATION
  Report Type: Spontaneous
  Country: GB (occurrence: GB)
  Receive Date: 20170607
  Receipt Date: 20170607
  Transmission Date: 20170830
  Serious: Yes (Death, Other)
  Sender: FDA-Public Use
  Company Number: PHFR2017GB004114

PATIENT
  Age: 69 Year
  Sex: Female

DRUGS (6)
  1. FOLIC ACID. [Concomitant]
     Active Substance: FOLIC ACID
     Indication: PRODUCT USED FOR UNKNOWN INDICATION
     Dosage: 1 DF, QW
     Route: 065
  2. PARACETAMOL [Concomitant]
     Active Substance: ACETAMINOPHEN
     Indication: PAIN
     Route: 065
  3. HYDROXYCHLOROQUINE [Concomitant]
     Active Substance: HYDROXYCHLOROQUINE
     Indication: PRODUCT USED FOR UNKNOWN INDICATION
     Dosage: IN THE MORNING. 400 MG DAILY FOR THE FIRST THREE MONTHS
     Route: 065
  4. METHOTREXATE. [Suspect]
     Active Substance: METHOTREXATE
     Indication: RHEUMATOID ARTHRITIS
     Dosage: 15 MG, QW
     Route: 065
     Dates: start: 201006
  5. DICLOFENAC SODIUM. [Concomitant]
     Active Substance: DICLOFENAC SODIUM
     Indication: PAIN
     Route: 065
  6. SULPHASALAZINE [Concomitant]
     Active Substance: SULFASALAZINE
     Indication: PRODUCT USED FOR UNKNOWN INDICATION
     Dosage: 500 MG DAILY STARTING DOSE, INCREASING TO MAINTENANCE DOSE OF 2G DAILY

REACTIONS (9)
  - Cough [Unknown]
  - Oxygen saturation decreased [None]
  - Pulmonary fibrosis [Fatal]
  - Rales [Unknown]
  - Lower respiratory tract infection [Not Recovered/Not Resolved]
  - Paraesthesia [Unknown]
  - Lung hyperinflation [None]
  - Bronchiectasis [None]
  - Dyspnoea [Unknown]

NARRATIVE: CASE EVENT DATE: 20100907
